FAERS Safety Report 7879420-9 (Version None)
Quarter: 2011Q4

REPORT INFORMATION
  Report Type: 
  Country: None (occurrence: None)
  Receive Date: 20111101
  Receipt Date: 20111101
  Transmission Date: 20120403
  Serious: No
  Sender: FDA-Public Use
  Company Number: US-B.I. PHARMACEUTICALS,INC./RIDGEFIELD-2011-BP-01036BP

PATIENT
  Sex: Male

DRUGS (17)
  1. METFORMIN HCL [Concomitant]
     Indication: DIABETES MELLITUS
  2. AVAPRO [Concomitant]
     Indication: HYPERTENSION
  3. AMIODARONE HCL [Concomitant]
     Indication: ATRIAL FIBRILLATION
  4. VITAMIN TAB [Concomitant]
     Indication: PROPHYLAXIS
  5. DEPLIN [Concomitant]
     Indication: DEPRESSION
  6. NORVASC [Concomitant]
     Indication: HYPERTENSION
  7. PROVENTIL [Concomitant]
  8. ASPIRIN [Concomitant]
     Indication: PROPHYLAXIS
  9. AVODART [Concomitant]
  10. ZOLOFT [Concomitant]
     Indication: DEPRESSION
  11. SPIRONOLACTONE [Concomitant]
     Indication: CARDIAC FAILURE CONGESTIVE
  12. POTASSIUM [Concomitant]
     Indication: PROPHYLAXIS
  13. NEXIUM [Concomitant]
  14. PRADAXA [Suspect]
     Indication: ATRIAL FIBRILLATION
     Dosage: 300 MG
     Route: 048
     Dates: start: 20101101
  15. TOPROL-XL [Concomitant]
     Indication: HYPERTENSION
  16. LASIX [Concomitant]
     Indication: CARDIAC FAILURE CONGESTIVE
  17. ZOCOR [Concomitant]
     Indication: DYSLIPIDAEMIA

REACTIONS (2)
  - CREATININE RENAL CLEARANCE DECREASED [None]
  - CREATININE RENAL CLEARANCE [None]
